FAERS Safety Report 5890253-5 (Version None)
Quarter: 2008Q3

REPORT INFORMATION
  Report Type: 
  Country: None (occurrence: None)
  Receive Date: 20080919
  Receipt Date: 20080909
  Transmission Date: 20090109
  Serious: Yes (Hospitalization, Other)
  Sender: FDA-Public Use
  Company Number: GB-PFIZER INC-2008076664

PATIENT
  Age: 25 Year
  Sex: Female
  Weight: 53 kg

DRUGS (1)
  1. CHANTIX [Suspect]
     Route: 048

REACTIONS (3)
  - DYSPNOEA [None]
  - PALPITATIONS [None]
  - PANIC ATTACK [None]
